FAERS Safety Report 5009316-1 (Version None)
Quarter: 2006Q2

REPORT INFORMATION
  Report Type: 
  Country: None (occurrence: None)
  Receive Date: 20060524
  Receipt Date: 20051212
  Transmission Date: 20061013
  Serious: Yes (Other)
  Sender: FDA-Public Use
  Company Number: CA-SOLVAY-00206001704

PATIENT
  Age: 791 Month
  Sex: Male

DRUGS (4)
  1. COVERSYL [Suspect]
     Indication: HYPERTENSION
     Dosage: DAILY DOSE: 4 MILLIGRAM(S)
     Route: 048
     Dates: start: 20020802, end: 20030610
  2. COVERSYL [Suspect]
     Dosage: DAILY DOSE: 4 MILLIGRAM(S)
     Route: 048
     Dates: start: 20031016, end: 20060327
  3. COVERSYL [Suspect]
     Dosage: DAILY DOSE: 2 MILLIGRAM(S)
     Route: 048
     Dates: start: 20060328, end: 20060502
  4. NIACIN [Suspect]
     Indication: HYPERCHOLESTEROLAEMIA
     Dosage: DAILY DOSE: 1 GRAM(S)
     Route: 048
     Dates: start: 20050801, end: 20051214

REACTIONS (1)
  - IDIOPATHIC THROMBOCYTOPENIC PURPURA [None]
